FAERS Safety Report 13133283 (Version 1)
Quarter: 2017Q1

REPORT INFORMATION
  Report Type: Spontaneous
  Country: KW (occurrence: KW)
  Receive Date: 20170120
  Receipt Date: 20170120
  Transmission Date: 20170428
  Serious: Yes (Hospitalization, Other)
  Sender: FDA-Public Use
  Company Number: KW-009507513-1701KWT006809

PATIENT
  Sex: Male

DRUGS (5)
  1. JANUVIA [Suspect]
     Active Substance: SITAGLIPTIN PHOSPHATE
     Dosage: UNK
     Route: 048
     Dates: start: 2004, end: 20170108
  2. GLIMEPRID [Concomitant]
     Active Substance: GLIMEPIRIDE
     Indication: TYPE 2 DIABETES MELLITUS
     Dosage: UNK
     Route: 048
     Dates: start: 1998
  3. LIPANTHYL [Concomitant]
     Active Substance: FENOFIBRATE
     Indication: BLOOD TRIGLYCERIDES ABNORMAL
     Dosage: UNK
     Route: 048
  4. ATORVASTATIN [Concomitant]
     Active Substance: ATORVASTATIN
     Indication: DYSLIPIDAEMIA
     Dosage: UNK
     Route: 048
  5. METFORMIN [Concomitant]
     Active Substance: METFORMIN HYDROCHLORIDE
     Indication: TYPE 2 DIABETES MELLITUS
     Dosage: UNK
     Route: 048
     Dates: start: 1998

REACTIONS (10)
  - Arteriosclerosis coronary artery [Unknown]
  - Pancreatitis acute [Recovered/Resolved]
  - Renal impairment [Unknown]
  - Hepatomegaly [Unknown]
  - Blood bicarbonate decreased [Unknown]
  - Seminal vesicular disorder [Unknown]
  - Blood triglycerides increased [Unknown]
  - Hepatic steatosis [Unknown]
  - Nephrolithiasis [Unknown]
  - Spondylolysis [Unknown]

NARRATIVE: CASE EVENT DATE: 201701
